FAERS Safety Report 9526903 (Version 1)
Quarter: 2013Q3

REPORT INFORMATION
  Report Type: Report from Study
  Country: US (occurrence: US)
  Receive Date: 20130916
  Receipt Date: 20130916
  Transmission Date: 20140515
  Serious: Yes (Other)
  Sender: FDA-Public Use
  Company Number: US-ABBVIE-13P-163-1144000-00

PATIENT
  Age: 48 Year
  Sex: Male
  Weight: 83.99 kg

DRUGS (2)
  1. HUMIRA [Suspect]
     Indication: ANKYLOSING SPONDYLITIS
     Dosage: 2 EACH
     Dates: start: 2007, end: 201305
  2. TRAMADOL [Concomitant]
     Indication: PRODUCT USED FOR UNKNOWN INDICATION

REACTIONS (8)
  - Blindness [Recovering/Resolving]
  - Retinal tear [Recovering/Resolving]
  - Retinal tear [Recovering/Resolving]
  - Fatigue [Unknown]
  - Weight decreased [Recovered/Resolved]
  - Sarcoidosis [Unknown]
  - Hepatic enzyme increased [Recovering/Resolving]
  - Dysphonia [Recovering/Resolving]
